FAERS Safety Report 7461982-7 (Version None)
Quarter: 2011Q2

REPORT INFORMATION
  Report Type: 
  Country: None (occurrence: None)
  Receive Date: 20110506
  Receipt Date: 20110425
  Transmission Date: 20111010
  Serious: Yes (Hospitalization, Other)
  Sender: FDA-Public Use
  Company Number: PHHY2011BR35528

PATIENT
  Sex: Female

DRUGS (10)
  1. DIOVAN [Suspect]
     Indication: HYPERTENSION
     Dosage: 160 MG, DAILY
     Route: 048
  2. BAMIFIX [Concomitant]
     Indication: LUNG DISORDER
     Dosage: 300 MG (2 TABLETS) DAILY
     Route: 048
  3. SILDENAFIL CITRATE [Concomitant]
     Indication: BRONCHIAL DISORDER
     Dosage: 25 MG (2 TABLETS) DAILY
     Route: 048
  4. HYDRALAZINE HYDROCHLORIDE [Concomitant]
     Indication: HYPERTENSION
     Dosage: 50 MG (3 TABLET DAILY)
     Route: 048
  5. ATACAND [Concomitant]
     Dosage: 1 DF DAILY
     Route: 048
     Dates: start: 20110101
  6. SERETIDE [Concomitant]
     Indication: ASTHMA
     Dosage: 250 MG OF FLUTICASONE PROPIONATE AND 50 MG OF SALMETEROL XINAFOATE TWICE DAILY
  7. LASIX [Concomitant]
     Indication: HYPERTENSION
     Dosage: 40 MG (2 TABLET DAILY)
     Route: 048
     Dates: start: 20110101
  8. METFFORMIN HYDROCHLORIDE [Concomitant]
     Indication: DIABETES MELLITUS
     Dosage: 500 MG, DAILY
     Route: 048
  9. COSOPT [Concomitant]
  10. PURAN T4 [Concomitant]
     Indication: HYPOTHYROIDISM
     Dosage: 175 MG, DAILY
     Route: 048

REACTIONS (6)
  - VISUAL ACUITY REDUCED [None]
  - PNEUMONIA [None]
  - PULMONARY OEDEMA [None]
  - NASOPHARYNGITIS [None]
  - ANAEMIA [None]
  - HYPERTENSION [None]
